FAERS Safety Report 24125269 (Version 2)
Quarter: 2024Q4

REPORT INFORMATION
  Report Type: Spontaneous
  Country: NL (occurrence: NL)
  Receive Date: 20240723
  Receipt Date: 20241223
  Transmission Date: 20250115
  Serious: Yes (Death, Other)
  Sender: AMGEN
  Company Number: NL-AMGEN-NLDSP2024140074

PATIENT

DRUGS (10)
  1. CARFILZOMIB [Suspect]
     Active Substance: CARFILZOMIB
     Indication: Plasma cell myeloma
     Dosage: 20 MILLIGRAM/SQ. METER, I.V.ON DAYS 1,2
     Route: 040
  2. CARFILZOMIB [Suspect]
     Active Substance: CARFILZOMIB
     Dosage: 27 MILLIGRAM/SQ. METER, ON DAYS 8, 9, 15, 16 OF CYCLE 1
     Route: 040
  3. CARFILZOMIB [Suspect]
     Active Substance: CARFILZOMIB
     Dosage: 36 MILLIGRAM/SQ. METER, ON DAYS 8, 9, 15, 16 OF CYCLE 1
     Route: 040
  4. CARFILZOMIB [Suspect]
     Active Substance: CARFILZOMIB
     Dosage: 45 MILLIGRAM/SQ. METER (DAYS 1, 2, 8, 9, 15 + 16 OF A 28 DAY CYCLE,)
     Route: 040
  5. CARFILZOMIB [Suspect]
     Active Substance: CARFILZOMIB
     Dosage: 56 MILLIGRAM/SQ. METER (DAYS 1, 2, 8, 9, 15 + 16 OF A 28 DAY CYCLE)
     Route: 040
  6. FILGRASTIM [Suspect]
     Active Substance: FILGRASTIM
     Indication: Prophylaxis
     Dosage: UNK
     Route: 065
  7. THALIDOMIDE [Concomitant]
     Active Substance: THALIDOMIDE
     Indication: Plasma cell myeloma
     Dosage: 200 MILLIGRAM, P.O. DAYS 1 THROUGH 28 OF A 28 DAY CYCLE
     Route: 048
  8. DEXAMETHASONE [Concomitant]
     Active Substance: DEXAMETHASONE
     Indication: Plasma cell myeloma
     Dosage: 40 MILLIGRAM,P.O. ON DAYS 1, 8, 15 + 22 OF A 28 DAY CYCLE.
     Route: 048
  9. MELPHALAN [Concomitant]
     Active Substance: MELPHALAN
     Indication: Plasma cell myeloma
     Dosage: 200 MILLIGRAM/SQ. METER
  10. CYCLOPHOSPHAMIDE [Concomitant]
     Active Substance: CYCLOPHOSPHAMIDE
     Indication: Plasma cell myeloma
     Dosage: 2 GRAM PER SQUARE METRE

REACTIONS (13)
  - Plasma cell myeloma [Fatal]
  - Polyneuropathy [Unknown]
  - Gastrointestinal disorder [Unknown]
  - Rash [Unknown]
  - Tumour lysis syndrome [Unknown]
  - Deep vein thrombosis [Unknown]
  - Pneumonia [Unknown]
  - Infection [Unknown]
  - Cardiac disorder [Recovered/Resolved]
  - Thrombosis [Unknown]
  - Second primary malignancy [Unknown]
  - Refusal of treatment by patient [Unknown]
  - Toxicity to various agents [Unknown]
